FAERS Safety Report 11272523 (Version 1)
Quarter: 2015Q2

REPORT INFORMATION
  Report Type: Spontaneous
  Country: US (occurrence: None)
  Receive Date: 20150625
  Receipt Date: 20150625
  Transmission Date: 20150821
  Serious: No
  Sender: FDA-Public Use
  Company Number: A-US2015-112096

PATIENT
  Age: 83 Year
  Sex: Female

DRUGS (5)
  1. REVATIO (SILDENAFIL CITRATE) [Concomitant]
  2. OPSUMIT [Suspect]
     Active Substance: MACITENTAN
     Indication: PULMONARY HYPERTENSION
     Route: 048
     Dates: start: 20141007
  3. TYVASO [Concomitant]
     Active Substance: TREPROSTINIL
  4. ASPIRIN (ACETYLSALICYLIC ACID) [Concomitant]
     Active Substance: ASPIRIN
  5. TREPROSTINIL DIOLAMIN [Suspect]
     Active Substance: TREPROSTINIL DIOLAMINE
     Indication: PRODUCT USED FOR UNKNOWN INDICATION
     Route: 048

REACTIONS (12)
  - Muscular weakness [None]
  - Nausea [None]
  - Dyspnoea [None]
  - Diarrhoea [None]
  - Asthenia [None]
  - Dyspnoea exertional [None]
  - Dyspepsia [None]
  - Vision blurred [None]
  - Muscle spasms [None]
  - Gastroenteritis viral [None]
  - Headache [None]
  - Flatulence [None]
